FAERS Safety Report 6576788-0 (Version None)
Quarter: 2010Q1

REPORT INFORMATION
  Report Type: 
  Country: None (occurrence: None)
  Receive Date: 20100210
  Receipt Date: 20100205
  Transmission Date: 20100710
  Serious: Yes (Hospitalization)
  Sender: FDA-Public Use
  Company Number: FR-ROCHE-684213

PATIENT
  Age: 54 Year
  Sex: Male

DRUGS (4)
  1. KYTRIL [Suspect]
     Indication: DRUG USE FOR UNKNOWN INDICATION
     Route: 065
     Dates: start: 20090615
  2. GEMZAR [Suspect]
     Dosage: SECOND CYCLE WAS POSTPONED FOR A LITTLE WHILE
     Route: 042
     Dates: start: 20090615
  3. GEMZAR [Suspect]
     Route: 042
     Dates: start: 20090706
  4. LYRICA [Suspect]
     Indication: DRUG USE FOR UNKNOWN INDICATION
     Route: 065

REACTIONS (3)
  - PRURITUS [None]
  - RASH MACULO-PAPULAR [None]
  - THROMBOCYTOPENIA [None]
